FAERS Safety Report 7900635-5 (Version None)
Quarter: 2011Q4

REPORT INFORMATION
  Report Type: 
  Country: None (occurrence: None)
  Receive Date: 20111104
  Receipt Date: 20111021
  Transmission Date: 20120403
  Serious: Yes (Death)
  Sender: FDA-Public Use
  Company Number: JP-2011-11278

PATIENT
  Age: 75 Year
  Sex: Male
  Weight: 41 kg

DRUGS (18)
  1. VERAPAMIL HYDROCHLORIDE [Concomitant]
  2. ESTAZOLAM [Concomitant]
  3. DEXTROSE [Concomitant]
  4. DOBUTREX [Concomitant]
  5. ALDACTONE [Concomitant]
  6. DIGOXIN [Concomitant]
  7. TAKEPRON (LANSOPRAZOLE) ORODISPERSIBLE [Concomitant]
  8. HANP (CARPERITIDE) [Concomitant]
  9. DISTILLED WATER (WATER FOR INJECTION) [Concomitant]
  10. SODIUM CHLORIDE [Concomitant]
  11. SAMSCA [Suspect]
     Indication: FLUID RETENTION
     Dosage: 15 MG MILLIGRAM(S), QD, ORAL : 7.5 MG MILLIGRAM(S), QD, ORAL
     Route: 048
     Dates: start: 20110730, end: 20110731
  12. SAMSCA [Suspect]
     Indication: FLUID RETENTION
     Dosage: 15 MG MILLIGRAM(S), QD, ORAL : 7.5 MG MILLIGRAM(S), QD, ORAL
     Route: 048
     Dates: start: 20110717, end: 20110719
  13. LASIX [Concomitant]
  14. JANUVIA [Concomitant]
  15. LACTEC (CALCIUM CHLORIDE DIHYDRATE, POTASSIUM CHLORIDE, SODIUM LACTATE [Concomitant]
  16. ASPIRIN [Concomitant]
  17. ZOLPIDEM TARTRATE [Concomitant]
  18. SODIUM CHLORIDE [Concomitant]

REACTIONS (11)
  - CARDIAC FAILURE [None]
  - HYPERKALAEMIA [None]
  - VENTRICULAR TACHYCARDIA [None]
  - HYPONATRAEMIA [None]
  - BLOOD PRESSURE DECREASED [None]
  - RESPIRATORY ARREST [None]
  - BRADYCARDIA [None]
  - CONDITION AGGRAVATED [None]
  - CARDIAC ARREST [None]
  - RENAL FAILURE ACUTE [None]
  - BURNING SENSATION [None]
